FAERS Safety Report 10412947 (Version 1)
Quarter: 2014Q3

REPORT INFORMATION
  Report Type: Spontaneous
  Country: US (occurrence: None)
  Receive Date: 20140826
  Receipt Date: 20140826
  Transmission Date: 20150326
  Serious: No
  Sender: FDA-Public Use
  Company Number: None

PATIENT
  Age: 47 Year
  Sex: Female
  Weight: 51 kg

DRUGS (2)
  1. SYNTHROID [Suspect]
     Active Substance: LEVOTHYROXINE SODIUM
     Indication: AUTOIMMUNE THYROIDITIS
     Dosage: 88 MICROGRAM/DAY ONCE DAILY TAKEN BY MOUTH
     Route: 048
     Dates: start: 20140602, end: 20140825
  2. SYNTHROID [Suspect]
     Active Substance: LEVOTHYROXINE SODIUM
     Indication: HYPOTHYROIDISM
     Dosage: 88 MICROGRAM/DAY ONCE DAILY TAKEN BY MOUTH
     Route: 048
     Dates: start: 20140602, end: 20140825

REACTIONS (6)
  - Product quality issue [None]
  - Left atrial dilatation [None]
  - Drug ineffective [None]
  - Sinus bradycardia [None]
  - Product substitution issue [None]
  - Blood thyroid stimulating hormone increased [None]

NARRATIVE: CASE EVENT DATE: 20140819
